FAERS Safety Report 23756124 (Version 2)
Quarter: 2024Q2

REPORT INFORMATION
  Report Type: Report from Study
  Country: US (occurrence: US)
  Receive Date: 20240418
  Receipt Date: 20240502
  Transmission Date: 20240716
  Serious: No
  Sender: FDA-Public Use
  Company Number: US-AGIOS-2404US03729

PATIENT
  Sex: Male

DRUGS (2)
  1. MITAPIVAT [Suspect]
     Active Substance: MITAPIVAT
     Indication: Pyruvate kinase deficiency anaemia
     Dosage: 5 MILLIGRAM
     Route: 065
     Dates: start: 20230917
  2. MITAPIVAT [Suspect]
     Active Substance: MITAPIVAT
     Dosage: 20 MILLIGRAM

REACTIONS (3)
  - Arthralgia [Unknown]
  - Pain [Unknown]
  - Drug intolerance [Unknown]
